FAERS Safety Report 9890510 (Version 1)
Quarter: 2014Q1

REPORT INFORMATION
  Report Type: Spontaneous
  Country: US (occurrence: None)
  Receive Date: 20140210
  Receipt Date: 20140210
  Transmission Date: 20141002
  Serious: Yes (Hospitalization)
  Sender: FDA-Public Use
  Company Number: None

PATIENT
  Age: 71 Year
  Sex: Male
  Weight: 82.6 kg

DRUGS (1)
  1. DABIGATRAN [Suspect]
     Indication: ATRIAL FLUTTER
     Route: 048
     Dates: start: 20131226, end: 20140115

REACTIONS (4)
  - Haematochezia [None]
  - Diarrhoea [None]
  - Neuropathy peripheral [None]
  - Gastrointestinal haemorrhage [None]
